FAERS Safety Report 12090242 (Version 1)
Quarter: 2016Q1

REPORT INFORMATION
  Report Type: Spontaneous
  Country: GB (occurrence: GB)
  Receive Date: 20160218
  Receipt Date: 20160218
  Transmission Date: 20160526
  Serious: Yes (Other)
  Sender: FDA-Public Use
  Company Number: GB-JNJFOC-20160205727

PATIENT
  Age: 69 Year
  Sex: Female
  Weight: 64 kg

DRUGS (15)
  1. PARACETAMOL [Suspect]
     Active Substance: ACETAMINOPHEN
     Indication: PRODUCT USED FOR UNKNOWN INDICATION
     Dosage: START PERIOD MENTIONED AS 154 DAYS
     Route: 065
     Dates: start: 20150827
  2. OMEPRAZOLE. [Concomitant]
     Active Substance: OMEPRAZOLE
     Indication: PRODUCT USED FOR UNKNOWN INDICATION
     Dosage: DOSE 1(UNSPECIFIED UNIT) IN THE MORNING.CUMULATIVE DOSE TO FIRST REACTION 154.041666.
     Route: 065
     Dates: start: 20150827
  3. DIAZEPAM. [Concomitant]
     Active Substance: DIAZEPAM
     Indication: PRODUCT USED FOR UNKNOWN INDICATION
     Dosage: 1 DOSE (UNSPECIFIED UNIT) AS REQUIRED
     Route: 065
     Dates: start: 20150827, end: 20160107
  4. ADCAL [Concomitant]
     Indication: PRODUCT USED FOR UNKNOWN INDICATION
     Dosage: DOSE 1 (UNSPECIFIED UNIT) EACH MORNING. CUMULATIVE DOSE TO FIRST REACTION 154.041666.
     Route: 065
     Dates: start: 20150827
  5. PARACETAMOL [Suspect]
     Active Substance: ACETAMINOPHEN
     Route: 065
  6. SENNA [Concomitant]
     Active Substance: SENNA LEAF\SENNOSIDES\SENNOSIDES A AND B
     Indication: PRODUCT USED FOR UNKNOWN INDICATION
     Dosage: TAKE 1 OR 2 AT NIGHT
     Route: 065
     Dates: start: 20151222, end: 20160101
  7. MIRTAZAPINE. [Concomitant]
     Active Substance: MIRTAZAPINE
     Indication: PRODUCT USED FOR UNKNOWN INDICATION
     Dosage: DOSE 1 (UNSPECIFIED UNIT) AT NIGHT CUMULATIVE DOSE TO FIRST REACTION: 154.041666 (UNSPECIFIED UNIT)
     Route: 065
     Dates: start: 20150827
  8. SERTRALINE [Concomitant]
     Active Substance: SERTRALINE HYDROCHLORIDE
     Indication: PRODUCT USED FOR UNKNOWN INDICATION
     Dosage: DOSE 1 (UNSPECIFIED UNIT) IN THE MORNING.CUMULATIVE DOSE TO FIRST REACTION: 154.041666
     Route: 065
     Dates: start: 20150827
  9. LAXIDO [Concomitant]
     Active Substance: POLYETHYLENE GLYCOL 3350\POTASSIUM CHLORIDE\SODIUM BICARBONATE\SODIUM CHLORIDE
     Indication: PRODUCT USED FOR UNKNOWN INDICATION
     Dosage: DOSE 1 (UNSPECIFIED UNIT)CUMULATIVE DOSE TO FIRST REACTION 308.08333 (UNSPECIFIED UNIT)
     Route: 065
     Dates: start: 20150827
  10. NAPROXEN. [Concomitant]
     Active Substance: NAPROXEN
     Indication: PRODUCT USED FOR UNKNOWN INDICATION
     Dosage: DOSE 1 (UNSPECIFIED UNIT) IN THE MORNING AND ONE IN EVENING WITH FOOD.
     Route: 065
     Dates: start: 20150827
  11. TETRABENAZINE. [Concomitant]
     Active Substance: TETRABENAZINE
     Indication: PRODUCT USED FOR UNKNOWN INDICATION
     Dosage: DOSE 1 (UNSPECIFIED UNIT) 4 PM. CUMULATIVE DOSE TO FIRST REACTION: 1540.41666
     Route: 065
     Dates: start: 20150827
  12. OTHER NUTRIENTS [Concomitant]
     Indication: PRODUCT USED FOR UNKNOWN INDICATION
     Dosage: DOSE 2(UNSPECIFIED UNIT)FORTISIP BOTTLE USE AS DIRECTED.CUMULATIVE DOSE TO FIRST REACTION:242.083333
     Route: 065
     Dates: start: 20150929
  13. BISACODYL. [Concomitant]
     Active Substance: BISACODYL
     Indication: PRODUCT USED FOR UNKNOWN INDICATION
     Dosage: 1 OR 2 AT NIGHT
     Route: 065
     Dates: start: 20150827
  14. IMUVAC [Concomitant]
     Active Substance: INFLUENZA A VIRUS A/CALIFORNIA/7/2009(H1N1)-LIKE ANTIGEN (PROPIOLACTONE INACTIVATED)
     Indication: PRODUCT USED FOR UNKNOWN INDICATION
     Route: 065
     Dates: start: 20151113, end: 20151114
  15. TRIMETHOPRIM. [Concomitant]
     Active Substance: TRIMETHOPRIM
     Indication: PRODUCT USED FOR UNKNOWN INDICATION
     Dosage: DOSE 1 (UNSPECIFIED UNIT).CUMULATIVE DOSE TO FIRST REACTION: 12.0
     Route: 065
     Dates: start: 20160122

REACTIONS (2)
  - Balance disorder [Recovered/Resolved]
  - Mobility decreased [Unknown]

NARRATIVE: CASE EVENT DATE: 20160128
